FAERS Safety Report 18539194 (Version 1)
Quarter: 2020Q4

REPORT INFORMATION
  Report Type: Spontaneous
  Country: US (occurrence: US)
  Receive Date: 20201123
  Receipt Date: 20201123
  Transmission Date: 20210114
  Serious: Yes (Hospitalization)
  Sender: FDA-Public Use
  Company Number: None

PATIENT
  Age: 34 Year
  Sex: Female

DRUGS (2)
  1. VITAMIN D, CAMILA, BIOTIN, BREO ELLIPTA [Concomitant]
  2. REBIF [Suspect]
     Active Substance: INTERFERON BETA-1A
     Indication: MULTIPLE SCLEROSIS
     Dosage: ?          OTHER FREQUENCY:3 TIMES PER WEEK;?
     Route: 058
     Dates: start: 20151210

REACTIONS (2)
  - Magnetic resonance imaging [None]
  - Malignant melanoma [None]

NARRATIVE: CASE EVENT DATE: 20201109
